FAERS Safety Report 8149874-1 (Version None)
Quarter: 2012Q1

REPORT INFORMATION
  Report Type: 
  Country: None (occurrence: None)
  Receive Date: 20120218
  Receipt Date: 20120105
  Transmission Date: 20120608
  Serious: No
  Sender: FDA-Public Use
  Company Number: US-ALLERGAN-1116337US

PATIENT
  Age: 61 Year
  Sex: Female
  Weight: 59.41 kg

DRUGS (5)
  1. BOTULINUM TOXIN TYPE A [Suspect]
     Indication: MIGRAINE
     Dosage: 155 UNITS, SINGLE
     Dates: start: 20111128, end: 20111128
  2. BOTULINUM TOXIN TYPE A [Suspect]
     Dosage: 155 UNK, UNK
     Dates: start: 20110520, end: 20110520
  3. BOTULINUM TOXIN TYPE A [Suspect]
     Dosage: 155 UNK, UNK
     Dates: start: 20110826, end: 20110826
  4. LAMICTAL [Concomitant]
     Indication: MIGRAINE
     Dosage: 100 MG, QD
     Route: 048
     Dates: start: 20100101
  5. TOPAMAX [Concomitant]
     Indication: MIGRAINE
     Dosage: 50 MG, QD
     Route: 048
     Dates: start: 20080101

REACTIONS (1)
  - DYSPHAGIA [None]
